FAERS Safety Report 6998643 (Version 3)
Quarter: 2012Q4

REPORT INFORMATION
  Report Type: 
  Country: US (occurrence: US)
  Receive Date: 20060303
  Receipt Date: 20121017
  Transmission Date: 20130627
  Serious: Yes (Other)
  Sender: FDA-Public Use
  Company Number: US-PFIZER INC-2006026562

PATIENT
  Age: 63 Year
  Sex: Female
  Weight: 100 kg

DRUGS (12)
  1. PROVERA [Suspect]
     Indication: HORMONE REPLACEMENT THERAPY
     Dosage: 2.5 mg, UNK
     Route: 048
     Dates: start: 1988
  2. PROVERA [Suspect]
     Dosage: 10 mg, UNK
     Route: 048
     Dates: start: 1993, end: 1999
  3. PREMARIN [Suspect]
     Indication: HORMONE REPLACEMENT THERAPY
     Dosage: 0.625 mg, UNK
     Route: 048
     Dates: start: 1988
  4. MEDROXYPROGESTERONE ACETATE [Suspect]
     Indication: HORMONE REPLACEMENT THERAPY
     Dosage: 10 mg, UNK
     Route: 048
     Dates: start: 1996
  5. MEDROXYPROGESTERONE ACETATE [Suspect]
     Dosage: 2.5 mg, UNK
     Route: 048
     Dates: start: 1998
  6. ESTROPIPATE [Suspect]
     Indication: HORMONE REPLACEMENT THERAPY
     Dosage: 0.75 mg, UNK
     Route: 048
     Dates: start: 1996
  7. CYCRIN [Suspect]
     Indication: HORMONE REPLACEMENT THERAPY
     Dosage: 2.5 mg, UNK
     Route: 048
     Dates: start: 1999
  8. ORTHO-EST [Suspect]
     Indication: HORMONE REPLACEMENT THERAPY
     Dosage: 0.625 mg, UNK
     Route: 048
     Dates: start: 1999
  9. MEDROXYPROGESTERONE [Suspect]
     Indication: HORMONE REPLACEMENT THERAPY
     Dosage: 10 mg, UNK
     Route: 048
     Dates: start: 1996
  10. MEDROXYPROGESTERONE [Suspect]
     Dosage: 2.5 mg, UNK
     Dates: start: 1998
  11. NORVASC [Concomitant]
     Indication: BLOOD PRESSURE
     Dosage: UNK
     Dates: start: 1970
  12. HYDROCHLOROTHIAZIDE [Concomitant]
     Indication: FLUID RETENTION
     Dosage: UNK
     Dates: start: 1970

REACTIONS (1)
  - Breast cancer female [Unknown]
